FAERS Safety Report 7504977-7 (Version None)
Quarter: 2011Q2

REPORT INFORMATION
  Report Type: 
  Country: None (occurrence: None)
  Receive Date: 20110526
  Receipt Date: 20110517
  Transmission Date: 20111010
  Serious: No
  Sender: FDA-Public Use
  Company Number: US-BIOGENIDEC-2011BI007827

PATIENT
  Sex: Female

DRUGS (1)
  1. TYSABRI [Suspect]
     Indication: MULTIPLE SCLEROSIS
     Route: 042
     Dates: start: 20090710, end: 20110201

REACTIONS (5)
  - PAIN IN EXTREMITY [None]
  - ANTIBODY TEST POSITIVE [None]
  - MUSCULAR WEAKNESS [None]
  - FATIGUE [None]
  - MENTAL IMPAIRMENT [None]
